FAERS Safety Report 5303644-8 (Version None)
Quarter: 2007Q2

REPORT INFORMATION
  Report Type: 
  Country: None (occurrence: None)
  Receive Date: 20070420
  Receipt Date: 20070413
  Transmission Date: 20071010
  Serious: Yes (Hospitalization)
  Sender: FDA-Public Use
  Company Number: FR-ABBOTT-07P-056-0364911-00

PATIENT
  Sex: Female
  Weight: 78 kg

DRUGS (4)
  1. ODRIK [Suspect]
     Indication: HYPERTENSION
     Route: 048
  2. ODRIK [Suspect]
     Route: 048
     Dates: start: 20070212, end: 20070214
  3. FUROSEMIDE [Suspect]
     Indication: OEDEMA PERIPHERAL
     Route: 048
     Dates: start: 20070123, end: 20070216
  4. HYDROCHLOROTHIAZIDE [Suspect]
     Indication: OEDEMA PERIPHERAL
     Route: 048
     Dates: start: 20070123, end: 20070216

REACTIONS (10)
  - ASTHENIA [None]
  - BLOOD PRESSURE INCREASED [None]
  - DEHYDRATION [None]
  - DIARRHOEA [None]
  - MUSCLE SPASMS [None]
  - NAUSEA [None]
  - PROTEINURIA [None]
  - RENAL IMPAIRMENT [None]
  - SKIN TURGOR DECREASED [None]
  - VOMITING [None]
